FAERS Safety Report 23530657 (Version 1)
Quarter: 2024Q1

REPORT INFORMATION
  Report Type: Spontaneous
  Country: US (occurrence: US)
  Receive Date: 20240216
  Receipt Date: 20240216
  Transmission Date: 20240410
  Serious: Yes (Hospitalization)
  Sender: FDA-Public Use
  Company Number: US-ELI_LILLY_AND_COMPANY-US202402003859

PATIENT
  Age: 73 Year
  Sex: Female
  Weight: 83 kg

DRUGS (18)
  1. MOUNJARO [Suspect]
     Active Substance: TIRZEPATIDE
     Indication: Product used for unknown indication
     Dosage: UNK UNK, UNKNOWN
     Route: 065
  2. DUPILUMAB [Suspect]
     Active Substance: DUPILUMAB
     Indication: Asthma
     Dosage: 200 MG, WEEKLY (1/W)
     Route: 058
  3. INSULIN LISPRO [Concomitant]
     Active Substance: INSULIN LISPRO
  4. INSULIN GLARGINE [Concomitant]
     Active Substance: INSULIN GLARGINE
  5. DULAGLUTIDE [Concomitant]
     Active Substance: DULAGLUTIDE
  6. METFORMIN [Concomitant]
     Active Substance: METFORMIN HYDROCHLORIDE
  7. NYSTATIN [Concomitant]
     Active Substance: NYSTATIN
  8. SERTRALINE [Concomitant]
     Active Substance: SERTRALINE HYDROCHLORIDE
  9. DICLOFENAC [Concomitant]
     Active Substance: DICLOFENAC
  10. TIZANIDINE [Concomitant]
     Active Substance: TIZANIDINE
  11. KETOROLAC [Concomitant]
     Active Substance: KETOROLAC TROMETHAMINE
  12. MONTELUKAST [Concomitant]
     Active Substance: MONTELUKAST SODIUM
  13. DILTIAZEM [Concomitant]
     Active Substance: DILTIAZEM
  14. COLESEVELAM [Concomitant]
     Active Substance: COLESEVELAM
  15. ATORVASTATIN [Concomitant]
     Active Substance: ATORVASTATIN
  16. FAMOTIDINE [Concomitant]
     Active Substance: FAMOTIDINE
  17. ALBUTEROL SULFATE [Concomitant]
     Active Substance: ALBUTEROL SULFATE
  18. NAPROXEN [Concomitant]
     Active Substance: NAPROXEN

REACTIONS (8)
  - Swelling [Unknown]
  - Pruritus [Unknown]
  - Rhinitis allergic [Unknown]
  - Essential hypertension [Unknown]
  - Hyperlipidaemia [Unknown]
  - Type 2 diabetes mellitus [Unknown]
  - Gastrooesophageal reflux disease [Unknown]
  - Drug hypersensitivity [Unknown]
